FAERS Safety Report 17551766 (Version 4)
Quarter: 2022Q1

REPORT INFORMATION
  Report Type: Report from Study
  Country: US (occurrence: US)
  Receive Date: 20200317
  Receipt Date: 20220119
  Transmission Date: 20220423
  Serious: Yes (Other)
  Sender: FDA-Public Use
  Company Number: US-JAZZ-2013-US-002730

PATIENT
  Age: 58 Year
  Sex: Female
  Weight: 72.562 kg

DRUGS (22)
  1. XYREM [Suspect]
     Active Substance: SODIUM OXYBATE
     Indication: Narcolepsy
     Dosage: 2.25 GRAM, FIRST DOSE
     Route: 048
     Dates: start: 201310
  2. XYREM [Suspect]
     Active Substance: SODIUM OXYBATE
     Indication: Cataplexy
     Dosage: 2 GRAM, SECOND DOSE
     Route: 048
     Dates: start: 201310
  3. XYREM [Suspect]
     Active Substance: SODIUM OXYBATE
     Dosage: 1.7 GRAM, QD, EVERY OTHER NIGHT
     Route: 048
     Dates: start: 2013, end: 2013
  4. XYREM [Suspect]
     Active Substance: SODIUM OXYBATE
     Dosage: 1.7 GRAM, FIRST DOSE
     Route: 048
     Dates: start: 201407, end: 2014
  5. XYREM [Suspect]
     Active Substance: SODIUM OXYBATE
     Dosage: 1.8 GRAM, SECOND DOSE
     Route: 048
     Dates: start: 201407, end: 2014
  6. XYREM [Suspect]
     Active Substance: SODIUM OXYBATE
     Dosage: 1.8 GRAM, FIRST DOSE
     Route: 048
     Dates: start: 2014, end: 2014
  7. XYREM [Suspect]
     Active Substance: SODIUM OXYBATE
     Dosage: 2 GRAM, SECOND DOSE
     Route: 048
     Dates: start: 2014, end: 2014
  8. XYREM [Suspect]
     Active Substance: SODIUM OXYBATE
     Dosage: 2.25 GRAM, BID
     Route: 048
     Dates: start: 2014
  9. XYREM [Suspect]
     Active Substance: SODIUM OXYBATE
     Dosage: 2.25 GRAM, BID
     Route: 048
     Dates: end: 202002
  10. XYREM [Suspect]
     Active Substance: SODIUM OXYBATE
     Dosage: 0.25 GRAM, BID
     Route: 048
     Dates: start: 202002, end: 2020
  11. XYREM [Suspect]
     Active Substance: SODIUM OXYBATE
     Dosage: 3 GRAM, BID
     Route: 048
     Dates: start: 2020
  12. XYREM [Suspect]
     Active Substance: SODIUM OXYBATE
     Dosage: 4.5 GRAM, BID
     Route: 048
  13. XYREM [Suspect]
     Active Substance: SODIUM OXYBATE
     Dosage: 3.5 GRAM, BID
     Route: 048
  14. LAMICTAL [Suspect]
     Active Substance: LAMOTRIGINE
     Indication: Product used for unknown indication
  15. KEPPRA [Suspect]
     Active Substance: LEVETIRACETAM
     Indication: Seizure
     Dosage: UNK
  16. ONFI [Suspect]
     Active Substance: CLOBAZAM
     Indication: Product used for unknown indication
  17. PREDNISONE [Suspect]
     Active Substance: PREDNISONE
     Indication: Product used for unknown indication
     Dosage: UNK
  18. LEVOTHYROXINE [Concomitant]
     Active Substance: LEVOTHYROXINE
     Indication: Hypothyroidism
     Dosage: 0.112 MG, QD
  19. LEVOTHYROXINE [Concomitant]
     Active Substance: LEVOTHYROXINE
     Dosage: 100 ?G, QD
     Route: 048
  20. ZOLOFT [Concomitant]
     Active Substance: SERTRALINE HYDROCHLORIDE
     Indication: Depression
     Dosage: 50 MG, QD
  21. DICLOFENAC POTASSIUM [Concomitant]
     Active Substance: DICLOFENAC POTASSIUM
     Indication: Product used for unknown indication
     Dosage: UNK
  22. EFFEXOR [Concomitant]
     Active Substance: VENLAFAXINE HYDROCHLORIDE
     Indication: Cataplexy
     Dosage: 37.50 G, QD
     Route: 048

REACTIONS (15)
  - Persistent depressive disorder [Recovered/Resolved]
  - Condition aggravated [Recovered/Resolved]
  - Suicidal ideation [Recovered/Resolved]
  - Cataplexy [Unknown]
  - Dysphemia [Recovered/Resolved]
  - Condition aggravated [Recovered/Resolved]
  - Energy increased [Unknown]
  - Sleep apnoea syndrome [Unknown]
  - Weight increased [Unknown]
  - Hypoaesthesia [Not Recovered/Not Resolved]
  - Tremor [Recovered/Resolved]
  - Therapeutic response unexpected [Unknown]
  - Intentional product misuse [Unknown]
  - Drug ineffective [Unknown]
  - Rash [Recovered/Resolved]

NARRATIVE: CASE EVENT DATE: 20131001
